FAERS Safety Report 9638615 (Version 2)
Quarter: 2014Q1

REPORT INFORMATION
  Report Type: Spontaneous
  Country: US (occurrence: US)
  Receive Date: 20131022
  Receipt Date: 20140122
  Transmission Date: 20141002
  Serious: No
  Sender: FDA-Public Use
  Company Number: US-BRISTOL-MYERS SQUIBB COMPANY-19437425

PATIENT
  Age: 79 Year
  Sex: Female
  Weight: 58.96 kg

DRUGS (12)
  1. ELIQUIS [Suspect]
     Indication: ATRIAL FIBRILLATION
     Dosage: MAY-2013
     Route: 048
     Dates: start: 2013
  2. WARFARIN SODIUM [Concomitant]
  3. SYNTHROID [Concomitant]
  4. DIOVAN [Concomitant]
  5. METOPROLOL [Concomitant]
  6. DIGOXIN [Concomitant]
     Dosage: 1DF: 0.125UNITS NOS
  7. ATORVASTATIN [Concomitant]
  8. ASPIRIN [Concomitant]
  9. PREMARIN [Concomitant]
  10. CALCIUM [Concomitant]
  11. VITAMIN D [Concomitant]
  12. LIPITOR [Concomitant]

REACTIONS (1)
  - Alopecia [Unknown]
